FAERS Safety Report 16532388 (Version 2)
Quarter: 2019Q3

REPORT INFORMATION
  Report Type: Spontaneous
  Country: US (occurrence: US)
  Receive Date: 20190705
  Receipt Date: 20190705
  Transmission Date: 20191004
  Serious: No
  Sender: FDA-Public Use
  Company Number: US-PFIZER INC-2019280894

PATIENT
  Age: 51 Year
  Sex: Female
  Weight: 89.8 kg

DRUGS (1)
  1. IBRANCE [Suspect]
     Active Substance: PALBOCICLIB
     Indication: BREAST CANCER METASTATIC
     Dosage: 125 MG, CYCLIC (D 1-21 Q 28 DAYS)
     Route: 048
     Dates: start: 20190617

REACTIONS (8)
  - Vomiting [Unknown]
  - Gait disturbance [Unknown]
  - Bladder pain [Unknown]
  - Bedridden [Unknown]
  - Nausea [Unknown]
  - Dysuria [Unknown]
  - Micturition urgency [Unknown]
  - Urinary tract infection [Unknown]

NARRATIVE: CASE EVENT DATE: 201906
